FAERS Safety Report 23487611 (Version 1)
Quarter: 2024Q1

REPORT INFORMATION
  Report Type: Spontaneous
  Country: US (occurrence: US)
  Receive Date: 20240206
  Receipt Date: 20240206
  Transmission Date: 20240410
  Serious: No
  Sender: FDA-Public Use
  Company Number: US-MYLANLABS-2023M1126427

PATIENT
  Sex: Female

DRUGS (1)
  1. LIPITOR [Suspect]
     Active Substance: ATORVASTATIN CALCIUM
     Indication: Product used for unknown indication
     Dosage: 0.5 DOSAGE FORM, Q2D ( (0.5 TABLET (OF 80 MG) ORAL Q 48 HOURS)
     Route: 048
     Dates: end: 20160517

REACTIONS (1)
  - Off label use [Unknown]
